FAERS Safety Report 8058875-3 (Version None)
Quarter: 2012Q1

REPORT INFORMATION
  Report Type: 
  Country: None (occurrence: None)
  Receive Date: 20120120
  Receipt Date: 20111025
  Transmission Date: 20120608
  Serious: No
  Sender: FDA-Public Use
  Company Number: US-BRISTOL-MYERS SQUIBB COMPANY-16193914

PATIENT

DRUGS (1)
  1. YERVOY [Suspect]
     Dosage: NO OF DOSE:1

REACTIONS (1)
  - BLOOD THYROID STIMULATING HORMONE INCREASED [None]
